FAERS Safety Report 13403729 (Version 2)
Quarter: 2017Q2

REPORT INFORMATION
  Report Type: Spontaneous
  Country: JP (occurrence: JP)
  Receive Date: 20170405
  Receipt Date: 20170425
  Transmission Date: 20170830
  Serious: Yes (Other)
  Sender: FDA-Public Use
  Company Number: PHHY2017JP043091

PATIENT
  Age: 19 Year
  Sex: Male

DRUGS (3)
  1. DIOVAN [Suspect]
     Active Substance: VALSARTAN
     Indication: BLOOD PRESSURE INCREASED
  2. DIOVAN [Suspect]
     Active Substance: VALSARTAN
     Indication: RENAL HYPOPLASIA
     Dosage: UNK
     Route: 048
     Dates: start: 20120402, end: 201508
  3. DIOVAN [Suspect]
     Active Substance: VALSARTAN
     Indication: PROTEINURIA

REACTIONS (2)
  - Product use in unapproved indication [Unknown]
  - Renal impairment [Unknown]

NARRATIVE: CASE EVENT DATE: 2015
